FAERS Safety Report 19937025 (Version 2)
Quarter: 2021Q4

REPORT INFORMATION
  Report Type: Other
  Country: ES (occurrence: None)
  Receive Date: 20211009
  Receipt Date: 20211125
  Transmission Date: 20220303
  Serious: Yes (Hospitalization)
  Sender: FDA-Public Use
  Company Number: ES-ROCHE-2929661

PATIENT
  Age: 73 Year
  Sex: Male

DRUGS (3)
  1. PRALSETINIB [Suspect]
     Active Substance: PRALSETINIB
     Indication: Lung neoplasm malignant
     Dosage: STOP DATE: 22/APR/2021
     Route: 048
     Dates: start: 20210225
  2. CARVEDILOL [Concomitant]
     Active Substance: CARVEDILOL
     Indication: Hypertension
     Dates: start: 20210121
  3. ACETAMINOPHEN [Concomitant]
     Active Substance: ACETAMINOPHEN
     Indication: Pain
     Dosage: DOSE: 1 GR
     Dates: start: 20210121

REACTIONS (2)
  - Nephritis [Recovered/Resolved]
  - Pneumonitis [Recovered/Resolved]

NARRATIVE: CASE EVENT DATE: 20210422
